FAERS Safety Report 26075187 (Version 1)
Quarter: 2025Q4

REPORT INFORMATION
  Report Type: Spontaneous
  Country: EU (occurrence: EU)
  Receive Date: 20251121
  Receipt Date: 20251121
  Transmission Date: 20260117
  Serious: Yes (Hospitalization, Other)
  Sender: TEVA
  Company Number: None

PATIENT
  Age: 40 Year
  Sex: Male

DRUGS (3)
  1. BUPRENORPHINE [Suspect]
     Active Substance: BUPRENORPHINE
     Indication: Product used for unknown indication
     Dosage: 6 MG/DAY
     Route: 060
     Dates: start: 2014
  2. ALCOHOL [Suspect]
     Active Substance: ALCOHOL
     Indication: Product used for unknown indication
     Dosage: 50 CL - 1 L OF BEER AT 5?/DAY, ALCOOL (BOISSON)
     Route: 048
     Dates: start: 1999
  3. COCAINE [Suspect]
     Active Substance: COCAINE
     Indication: Product used for unknown indication
     Route: 065
     Dates: start: 2007

REACTIONS (2)
  - Substance use disorder [Not Recovered/Not Resolved]
  - Arthritis bacterial [Recovering/Resolving]
